FAERS Safety Report 23288521 (Version 3)
Quarter: 2024Q2

REPORT INFORMATION
  Report Type: Report from Study
  Country: JP (occurrence: JP)
  Receive Date: 20231212
  Receipt Date: 20240418
  Transmission Date: 20240716
  Serious: Yes (Death, Other)
  Sender: FDA-Public Use
  Company Number: JP-GENMAB-2023-02337

PATIENT
  Age: 75 Year
  Sex: Female
  Weight: 47 kg

DRUGS (4)
  1. EPKINLY [Suspect]
     Active Substance: EPCORITAMAB-BYSP
     Indication: Diffuse large B-cell lymphoma refractory
     Dosage: 0.16 MILLIGRAM, SINGLE
     Route: 058
     Dates: start: 20231129, end: 20231129
  2. PREDNISOLONE [Concomitant]
     Active Substance: PREDNISOLONE
     Indication: Prophylaxis
     Dosage: 100 MILLIGRAM, WEEKLY
     Route: 048
     Dates: start: 20231129, end: 20231202
  3. ACETAMINOPHEN [Concomitant]
     Active Substance: ACETAMINOPHEN
     Indication: Prophylaxis
     Dosage: 800 MILLIGRAM, WEEKLY
     Route: 048
     Dates: start: 20231129, end: 20231129
  4. FEXOFENADINE HYDROCHLORIDE ALLERGY [Concomitant]
     Indication: Prophylaxis
     Dosage: 50 MILLIGRAM, WEEKLY
     Route: 048
     Dates: start: 20231129, end: 20231129

REACTIONS (2)
  - Diffuse large B-cell lymphoma refractory [Fatal]
  - Cytokine release syndrome [Not Recovered/Not Resolved]

NARRATIVE: CASE EVENT DATE: 20231205
